FAERS Safety Report 9326402 (Version 1)
Quarter: 2013Q2

REPORT INFORMATION
  Report Type: Spontaneous
  Country: US (occurrence: None)
  Receive Date: 20130603
  Receipt Date: 20130603
  Transmission Date: 20140414
  Serious: Yes (Hospitalization)
  Sender: FDA-Public Use
  Company Number: None

PATIENT
  Age: 57 Year
  Sex: Male
  Weight: 76.6 kg

DRUGS (2)
  1. CISPLATIN [Suspect]
     Dosage: DOSE REDUCED ON DAY 8
     Dates: start: 20100330
  2. TAXOL (PACLITAXEL) [Suspect]
     Dosage: DOSE REDUCED ON DAY 8
     Dates: start: 20100330

REACTIONS (9)
  - Nausea [None]
  - Dizziness [None]
  - Fatigue [None]
  - Blood pressure systolic decreased [None]
  - Heart rate increased [None]
  - Hypophagia [None]
  - Weight decreased [None]
  - Dehydration [None]
  - Refusal of treatment by patient [None]
